FAERS Safety Report 8205240-1 (Version None)
Quarter: 2012Q1

REPORT INFORMATION
  Report Type: 
  Country: None (occurrence: None)
  Receive Date: 20120313
  Receipt Date: 20120308
  Transmission Date: 20120608
  Serious: Yes (Death, Hospitalization)
  Sender: FDA-Public Use
  Company Number: GB-ROCHE-1046992

PATIENT
  Sex: Male

DRUGS (1)
  1. LUCENTIS [Suspect]
     Indication: PRODUCT USED FOR UNKNOWN INDICATION
     Dosage: DOSE: UNKNOWN
     Route: 050

REACTIONS (4)
  - SPINAL CORD COMPRESSION [None]
  - FALL [None]
  - CERVICAL VERTEBRAL FRACTURE [None]
  - PNEUMONIA [None]
